FAERS Safety Report 18877161 (Version 1)
Quarter: 2021Q1

REPORT INFORMATION
  Report Type: Report from Study
  Country: US (occurrence: US)
  Receive Date: 20210210
  Receipt Date: 20210210
  Transmission Date: 20210420
  Serious: Yes (Death, Other)
  Sender: FDA-Public Use
  Company Number: US-SUN PHARMACEUTICAL INDUSTRIES LTD-2021R1-279537

PATIENT
  Age: 77 Year
  Sex: Female

DRUGS (1)
  1. FLECAINIDE ACETATE. [Suspect]
     Active Substance: FLECAINIDE ACETATE
     Indication: PRODUCT USED FOR UNKNOWN INDICATION
     Route: 065

REACTIONS (13)
  - Ventricular arrhythmia [Fatal]
  - Electrocardiogram QT interval [Fatal]
  - Atrioventricular block [Fatal]
  - Pneumonia aspiration [Fatal]
  - Electrocardiogram QRS complex [Fatal]
  - Acute lung injury [Fatal]
  - Depressed level of consciousness [Fatal]
  - Hypotension [Fatal]
  - Metabolic acidosis [Fatal]
  - Acute kidney injury [Fatal]
  - Bradycardia [Fatal]
  - Myocardial ischaemia [Fatal]
  - Hepatotoxicity [Fatal]
